FAERS Safety Report 11370217 (Version 2)
Quarter: 2015Q3

REPORT INFORMATION
  Report Type: Report from Study
  Country: VE (occurrence: VE)
  Receive Date: 20150812
  Receipt Date: 20150818
  Transmission Date: 20151125
  Serious: Yes (Other)
  Sender: FDA-Public Use
  Company Number: PHHY2015VE096519

PATIENT
  Sex: Female

DRUGS (11)
  1. NORVASC [Concomitant]
     Active Substance: AMLODIPINE BESYLATE
     Indication: HYPERTENSION
     Dosage: 5 MG, QD
     Route: 065
     Dates: start: 1999
  2. SANDOSTATIN LAR DEPOT [Suspect]
     Active Substance: OCTREOTIDE ACETATE
     Indication: CARCINOID SYNDROME
     Dosage: 30 MG, QMO
     Route: 030
     Dates: start: 201004
  3. CALCIUM [Concomitant]
     Active Substance: CALCIUM
     Indication: PRODUCT USED FOR UNKNOWN INDICATION
     Dosage: UNK UNK, QD
     Route: 065
  4. PLAVIX [Concomitant]
     Active Substance: CLOPIDOGREL BISULFATE
     Indication: ANTICOAGULANT THERAPY
     Dosage: 37.5 MG, QD
     Route: 065
     Dates: start: 2014
  5. MICROSER [Concomitant]
     Active Substance: BETAHISTINE HYDROCHLORIDE
     Indication: NERVOUS SYSTEM DISORDER
     Dosage: 8 MG, QD
     Route: 065
     Dates: start: 2003
  6. OMEGA 3 [Concomitant]
     Active Substance: OMEGA-3 FATTY ACIDS
     Indication: LIPIDS INCREASED
     Dosage: UNK UNK, QD
     Route: 065
     Dates: start: 2006
  7. BLOKIURET [Concomitant]
     Indication: HYPERTENSION
     Dosage: 20/12.5 MG, QD
     Route: 065
     Dates: start: 2000
  8. FOLIC ACID. [Concomitant]
     Active Substance: FOLIC ACID
     Indication: PRODUCT USED FOR UNKNOWN INDICATION
     Dosage: 10 MG, QD
     Route: 065
     Dates: start: 2006
  9. TRANGOREX [Concomitant]
     Active Substance: AMIODARONE HYDROCHLORIDE
     Indication: ARRHYTHMIA
     Dosage: 50 MG, QW3
     Route: 065
     Dates: start: 2003
  10. MEVALOTIN [Concomitant]
     Active Substance: PRAVASTATIN SODIUM
     Indication: LIPIDS INCREASED
     Dosage: 20 MG, QD
     Route: 065
     Dates: start: 2003
  11. MV [Concomitant]
     Indication: PRODUCT USED FOR UNKNOWN INDICATION
     Dosage: UNK UNK, QD
     Route: 065

REACTIONS (11)
  - Joint dislocation [Unknown]
  - Bone formation increased [Unknown]
  - Anxiety [Unknown]
  - Hypotension [Unknown]
  - Foot deformity [Unknown]
  - Osteoarthritis [Unknown]
  - Hypokinesia [Unknown]
  - Limb injury [Unknown]
  - Retinal infarction [Unknown]
  - Cholelithiasis [Unknown]
  - Pain in extremity [Unknown]

NARRATIVE: CASE EVENT DATE: 2014
